FAERS Safety Report 8134605-1 (Version None)
Quarter: 2012Q1

REPORT INFORMATION
  Report Type: 
  Country: None (occurrence: None)
  Receive Date: 20120209
  Receipt Date: 20120201
  Transmission Date: 20120608
  Serious: Yes (Death)
  Sender: FDA-Public Use
  Company Number: 2012AT000054

PATIENT
  Age: 70 Year
  Sex: Male

DRUGS (3)
  1. GLYBURIDE [Concomitant]
  2. ALPROSTADIL [Suspect]
     Indication: PERIPHERAL ARTERIAL OCCLUSIVE DISEASE
     Dosage: 60 UG, QD, IV
     Route: 042
     Dates: start: 20120106, end: 20120116
  3. VANCOMYCIN [Concomitant]

REACTIONS (5)
  - HAEMATOCHEZIA [None]
  - ARTERIOSCLEROSIS CORONARY ARTERY [None]
  - CARDIOGENIC SHOCK [None]
  - MYOCARDIAL INFARCTION [None]
  - HAEMOGLOBIN DECREASED [None]
